FAERS Safety Report 15665530 (Version 1)
Quarter: 2018Q4

REPORT INFORMATION
  Report Type: Spontaneous
  Country: FR (occurrence: FR)
  Receive Date: 20181128
  Receipt Date: 20181128
  Transmission Date: 20190205
  Serious: Yes (Life-Threatening)
  Sender: FDA-Public Use
  Company Number: FR-LPDUSPRD-20182223

PATIENT
  Age: 52 Year
  Sex: Male
  Weight: 74 kg

DRUGS (2)
  1. VENOFER [Suspect]
     Active Substance: IRON SUCROSE
     Dosage: 1 AMPOULE ( 1 DOSAGE FORMS)
     Route: 042
     Dates: start: 20180928, end: 20180930
  2. GENVOYA [Concomitant]
     Active Substance: COBICISTAT\ELVITEGRAVIR\EMTRICITABINE\TENOFOVIR ALAFENAMIDE FUMARATE
     Dosage: 1 DOSAGE FORM, 1 IN 1 D
     Route: 048

REACTIONS (2)
  - Bronchospasm [Unknown]
  - Tetany [Unknown]

NARRATIVE: CASE EVENT DATE: 20180930
